FAERS Safety Report 10883901 (Version 1)
Quarter: 2015Q1

REPORT INFORMATION
  Report Type: Report from Study
  Country: AU (occurrence: AU)
  Receive Date: 20150304
  Receipt Date: 20150304
  Transmission Date: 20150721
  Serious: Yes (Hospitalization)
  Sender: FDA-Public Use
  Company Number: AU-ALKEM-000898

PATIENT
  Age: 32 Year
  Sex: Male

DRUGS (5)
  1. FOSINOPRIL [Suspect]
     Active Substance: FOSINOPRIL
  2. ATENOLOL/ATENOLOL HYDROCHLORIDE [Suspect]
     Active Substance: ATENOLOL
  3. METFORMIN [Suspect]
     Active Substance: METFORMIN HYDROCHLORIDE
     Dosage: IMMEDIATE RELEASE PREPARATION
  4. VERAPAMIL [Suspect]
     Active Substance: VERAPAMIL HYDROCHLORIDE
  5. GLICLAZIDE [Suspect]
     Active Substance: GLICLAZIDE

REACTIONS (7)
  - Hyperlactacidaemia [Unknown]
  - Bradycardia [Unknown]
  - Hypotension [Unknown]
  - Renal failure [Unknown]
  - Acidosis [Unknown]
  - Intentional overdose [Unknown]
  - Hypoglycaemia [Unknown]
